FAERS Safety Report 12156323 (Version 1)
Quarter: 2016Q1

REPORT INFORMATION
  Report Type: Spontaneous
  Country: FR (occurrence: FR)
  Receive Date: 20160307
  Receipt Date: 20160307
  Transmission Date: 20160526
  Serious: Yes (Life-Threatening, Hospitalization)
  Sender: FDA-Public Use
  Company Number: FR-ELI_LILLY_AND_COMPANY-FR201602008930

PATIENT
  Age: 76 Year
  Sex: Female

DRUGS (2)
  1. INNOHEP [Suspect]
     Active Substance: TINZAPARIN SODIUM
     Dosage: 14000 IU, QD
     Route: 058
     Dates: start: 20160105, end: 20160108
  2. GEMZAR [Suspect]
     Active Substance: GEMCITABINE HYDROCHLORIDE
     Indication: PRODUCT USED FOR UNKNOWN INDICATION
     Dosage: 1000 MG, WEEKLY (1/W)
     Route: 042
     Dates: start: 20160108, end: 20160128

REACTIONS (3)
  - Jugular vein thrombosis [Recovered/Resolved]
  - Pulmonary embolism [Recovered/Resolved]
  - Deep vein thrombosis [Recovered/Resolved]

NARRATIVE: CASE EVENT DATE: 20160108
